FAERS Safety Report 9722417 (Version 1)
Quarter: 2013Q4

REPORT INFORMATION
  Report Type: Spontaneous
  Country: US (occurrence: None)
  Receive Date: 20131127
  Receipt Date: 20131127
  Transmission Date: 20140711
  Serious: Yes (Death)
  Sender: FDA-Public Use
  Company Number: None

PATIENT
  Age: 52 Year
  Sex: Female
  Weight: 0 kg

DRUGS (13)
  1. PEGASYS [Suspect]
     Indication: HEPATITIS C
     Dosage: 180UG/0.5ML IV ONCE A WEEK.
     Dates: start: 20131013
  2. RIBAVIRIN [Suspect]
     Indication: HEPATITIS C
     Dosage: 600 MG QD,PO.STARTED ON 13/10/13
  3. ALBUTEROL [Concomitant]
  4. FERROUS GLUCONATE [Concomitant]
  5. FERROUS SULFATE [Concomitant]
  6. FLUTICASONE-SALMETEROL [Concomitant]
  7. HYDROXYZINE [Concomitant]
  8. MORPHINE [Concomitant]
  9. MULTIVITAMIN [Concomitant]
  10. NYSTATIN [Concomitant]
  11. SERTALINE HC1 TABLETS/ MFR UNKNOWN [Concomitant]
  12. TIOTROPIUM [Concomitant]
  13. TRAZADONE [Concomitant]

REACTIONS (4)
  - Respiratory disorder [None]
  - Sepsis [None]
  - Acute respiratory distress syndrome [None]
  - Renal failure acute [None]
